FAERS Safety Report 8188049-7 (Version None)
Quarter: 2012Q1

REPORT INFORMATION
  Report Type: 
  Country: None (occurrence: None)
  Receive Date: 20120306
  Receipt Date: 20120229
  Transmission Date: 20120608
  Serious: Yes (Other)
  Sender: FDA-Public Use
  Company Number: US-PFIZER INC-2012055421

PATIENT
  Age: 66 Year
  Sex: Male

DRUGS (1)
  1. LYRICA [Suspect]
     Dosage: 75, 2X/DAY

REACTIONS (1)
  - SUICIDAL IDEATION [None]
